FAERS Safety Report 5984339-4 (Version None)
Quarter: 2008Q4

REPORT INFORMATION
  Report Type: 
  Country: None (occurrence: None)
  Receive Date: 20081208
  Receipt Date: 20081201
  Transmission Date: 20090506
  Serious: Yes (Other)
  Sender: FDA-Public Use
  Company Number: PHHY2008FR30658

PATIENT
  Age: 37 Year
  Sex: Female

DRUGS (2)
  1. TRILEPTAL [Suspect]
     Indication: EPILEPSY
     Dosage: 225 MG, QD
     Route: 048
     Dates: start: 20060101
  2. DAFLON (DIOSMIN) [Concomitant]

REACTIONS (5)
  - DEPRESSION [None]
  - EATING DISORDER [None]
  - HYPOTENSION [None]
  - POOR PERIPHERAL CIRCULATION [None]
  - WEIGHT INCREASED [None]
